FAERS Safety Report 22170087 (Version 2)
Quarter: 2023Q2

REPORT INFORMATION
  Report Type: Spontaneous
  Country: US (occurrence: US)
  Receive Date: 20230404
  Receipt Date: 20230421
  Transmission Date: 20230722
  Serious: No
  Sender: FDA-Public Use
  Company Number: US-GSK-US2023AMR049057

PATIENT
  Sex: Female

DRUGS (2)
  1. ANORO ELLIPTA [Suspect]
     Active Substance: UMECLIDINIUM BROMIDE\VILANTEROL TRIFENATATE
     Indication: Product used for unknown indication
     Dosage: UNK, 62.5/25 MCG
     Dates: start: 2021
  2. ANORO ELLIPTA [Suspect]
     Active Substance: UMECLIDINIUM BROMIDE\VILANTEROL TRIFENATATE
     Indication: Product used for unknown indication
     Dosage: 1 PUFF(S), QD

REACTIONS (12)
  - Dyspnoea [Unknown]
  - Visual impairment [Unknown]
  - Vitreous floaters [Unknown]
  - Colour blindness [Unknown]
  - Weight decreased [Unknown]
  - Malaise [Unknown]
  - Dizziness [Unknown]
  - Anxiety [Unknown]
  - Vision blurred [Unknown]
  - Eye disorder [Unknown]
  - Photopsia [Unknown]
  - Drug ineffective [Unknown]
